FAERS Safety Report 5585578-7 (Version None)
Quarter: 2008Q1

REPORT INFORMATION
  Report Type: 
  Country: None (occurrence: None)
  Receive Date: 20080109
  Receipt Date: 20080103
  Transmission Date: 20080703
  Serious: Yes (Other)
  Sender: FDA-Public Use
  Company Number: B0441191A

PATIENT
  Age: 43 Year
  Sex: Female

DRUGS (6)
  1. SEROXAT [Suspect]
     Indication: ANXIETY
     Dates: start: 19970326
  2. PROPRANOLOL [Concomitant]
  3. DIAZEPAM [Concomitant]
     Dates: start: 20060109
  4. PROZAC [Concomitant]
     Dates: start: 20020131
  5. CIPRAMIL [Concomitant]
     Dates: start: 20010313
  6. CLOMIPRAMINE HCL [Concomitant]
     Dates: start: 20051212

REACTIONS (30)
  - AGITATION [None]
  - ANOREXIA [None]
  - ANXIETY [None]
  - CONFUSIONAL STATE [None]
  - CRYING [None]
  - DIARRHOEA [None]
  - DISTURBANCE IN ATTENTION [None]
  - DIZZINESS [None]
  - EMOTIONAL DISTRESS [None]
  - FATIGUE [None]
  - HEADACHE [None]
  - HYPERHIDROSIS [None]
  - INFLUENZA [None]
  - LETHARGY [None]
  - LOSS OF CONSCIOUSNESS [None]
  - MALAISE [None]
  - MEMORY IMPAIRMENT [None]
  - MENTAL DISORDER [None]
  - NAUSEA [None]
  - NIGHTMARE [None]
  - PANIC ATTACK [None]
  - PARAESTHESIA [None]
  - SLEEP DISORDER [None]
  - SUICIDAL IDEATION [None]
  - SYNCOPE [None]
  - TEARFULNESS [None]
  - TREMOR [None]
  - VERTIGO [None]
  - VOMITING [None]
  - WITHDRAWAL SYNDROME [None]
